FAERS Safety Report 17265084 (Version 2)
Quarter: 2020Q1

REPORT INFORMATION
  Report Type: Spontaneous
  Country: ES (occurrence: ES)
  Receive Date: 20200113
  Receipt Date: 20200207
  Transmission Date: 20200409
  Serious: Yes (Death, Other)
  Sender: FDA-Public Use
  Company Number: ES-ABBVIE-20K-144-3230359-00

PATIENT
  Age: 78 Year
  Sex: Female

DRUGS (2)
  1. ADIRO [Concomitant]
     Active Substance: ASPIRIN
     Indication: DIABETES MELLITUS
     Dosage: 100 MILLIGRAM DAILY DOSE
     Route: 048
  2. VENCLYXTO [Suspect]
     Active Substance: VENETOCLAX
     Indication: CHRONIC LYMPHOCYTIC LEUKAEMIA
     Route: 048
     Dates: start: 20190731

REACTIONS (3)
  - Cerebral haemorrhage [Fatal]
  - Hypertension [Unknown]
  - Diabetes mellitus [Unknown]
